FAERS Safety Report 9502560 (Version 1)
Quarter: 2013Q3

REPORT INFORMATION
  Report Type: Spontaneous
  Country: US (occurrence: US)
  Receive Date: 20130906
  Receipt Date: 20130906
  Transmission Date: 20140515
  Serious: Yes (Hospitalization)
  Sender: FDA-Public Use
  Company Number: US-BAYER-2013-105716

PATIENT
  Age: 19 Year
  Sex: Female

DRUGS (3)
  1. YAZ [Suspect]
     Indication: CONTRACEPTION
  2. VITAMIN C [Concomitant]
     Dosage: UNK
     Dates: start: 20070919
  3. NAPROXEN [Concomitant]
     Dosage: 500 MG, UNK

REACTIONS (3)
  - Pelvic venous thrombosis [None]
  - Thrombophlebitis superficial [None]
  - Deep vein thrombosis [None]
